FAERS Safety Report 15035937 (Version 2)
Quarter: 2018Q3

REPORT INFORMATION
  Report Type: Spontaneous
  Country: US (occurrence: US)
  Receive Date: 20180620
  Receipt Date: 20180724
  Transmission Date: 20181010
  Serious: No
  Sender: FDA-Public Use
  Company Number: US-ASTRAZENECA-2018SE68618

PATIENT
  Sex: Female

DRUGS (3)
  1. PULMICORT FLEXHALER [Suspect]
     Active Substance: BUDESONIDE
     Indication: PREGNANCY
     Route: 055
     Dates: start: 2015
  2. OXYS [Concomitant]
     Active Substance: OXYCODONE
     Dosage: UNKNOWN
  3. PULMICORT FLEXHALER [Suspect]
     Active Substance: BUDESONIDE
     Indication: ASTHMA
     Route: 055
     Dates: start: 2015

REACTIONS (5)
  - Intentional product misuse [Unknown]
  - Device issue [Unknown]
  - Exposure during pregnancy [Unknown]
  - Somnolence [Unknown]
  - Dyspnoea [Unknown]
